FAERS Safety Report 6554161-9 (Version None)
Quarter: 2010Q1

REPORT INFORMATION
  Report Type: 
  Country: None (occurrence: None)
  Receive Date: 20100125
  Receipt Date: 20100125
  Transmission Date: 20100710
  Serious: Yes (Other)
  Sender: FDA-Public Use
  Company Number: None

PATIENT
  Sex: Female
  Weight: 54.4316 kg

DRUGS (1)
  1. TYLENOL (CAPLET) [Suspect]
     Indication: CARDIAC OPERATION
     Dosage: 500MG 4-6HRS PO
     Route: 048
     Dates: start: 20090106, end: 20090330

REACTIONS (2)
  - MIGRAINE [None]
  - VISION BLURRED [None]
